FAERS Safety Report 8303902-9 (Version None)
Quarter: 2012Q2

REPORT INFORMATION
  Report Type: 
  Country: None (occurrence: None)
  Receive Date: 20120418
  Receipt Date: 20120330
  Transmission Date: 20120825
  Serious: Yes (Hospitalization)
  Sender: FDA-Public Use
  Company Number: 2011PROUSA00863

PATIENT
  Age: 86 Year
  Sex: Male
  Weight: 79.8 kg

DRUGS (10)
  1. METFORMIN HCL [Concomitant]
  2. ALTACE [Concomitant]
  3. METOPROLOL TARTRATE [Concomitant]
  4. ASPIRIN [Concomitant]
  5. PROVENGE [Suspect]
     Dosage: 250 ML, SINGLE, INTRAVENOUS
     Route: 042
     Dates: start: 20111205, end: 20111205
  6. DENOSUMAB (DENOSUMAB) [Concomitant]
  7. VYTORIN [Concomitant]
  8. PLENDIL [Concomitant]
  9. PROVENGE [Suspect]
     Indication: PROSTATE CANCER METASTATIC
     Dosage: 250 ML, SINGLE, INTRAVENOUS
     Route: 042
     Dates: start: 20111121, end: 20111121
  10. NITROQUICK (GLYCERYL TRINITRATE) [Concomitant]

REACTIONS (6)
  - AORTIC STENOSIS [None]
  - HYPOTENSION [None]
  - HYPOXIA [None]
  - PULMONARY OEDEMA [None]
  - MYOCARDIAL INFARCTION [None]
  - INFLUENZA LIKE ILLNESS [None]
